FAERS Safety Report 9281204 (Version 2)
Quarter: 2013Q2

REPORT INFORMATION
  Report Type: Spontaneous
  Country: CH (occurrence: CH)
  Receive Date: 20130509
  Receipt Date: 20130529
  Transmission Date: 20140414
  Serious: Yes (Other)
  Sender: FDA-Public Use
  Company Number: PHHY2013CH042418

PATIENT
  Age: 90 Year
  Sex: Male

DRUGS (1)
  1. MIACALCIC NASAL [Suspect]
     Indication: PAIN

REACTIONS (7)
  - Pathological fracture [Unknown]
  - Haematoma [Unknown]
  - Osteoporosis [Unknown]
  - Renal disorder [Unknown]
  - Pain [Unknown]
  - Blood creatinine increased [Unknown]
  - Hypertension [Unknown]
